FAERS Safety Report 6136086-6 (Version None)
Quarter: 2009Q1

REPORT INFORMATION
  Report Type: 
  Country: None (occurrence: None)
  Receive Date: 20090330
  Receipt Date: 20090324
  Transmission Date: 20090719
  Serious: Yes (Death, Life-Threatening, Hospitalization)
  Sender: FDA-Public Use
  Company Number: AU-JNJFOC-20090103429

PATIENT
  Sex: Female

DRUGS (7)
  1. REMICADE [Suspect]
     Route: 042
  2. REMICADE [Suspect]
     Route: 042
  3. REMICADE [Suspect]
     Route: 042
  4. REMICADE [Suspect]
     Route: 042
  5. REMICADE [Suspect]
     Route: 042
  6. REMICADE [Suspect]
     Dosage: 2 INTRAVENOUS INFUSIONS
     Route: 042
  7. REMICADE [Suspect]
     Indication: PSORIASIS
     Route: 042

REACTIONS (6)
  - DEATH [None]
  - DEHYDRATION [None]
  - INFECTION [None]
  - MALAISE [None]
  - MULTI-ORGAN FAILURE [None]
  - PNEUMONIA [None]
